FAERS Safety Report 4434049-X (Version None)
Quarter: 2004Q3

REPORT INFORMATION
  Report Type: 
  Country: None (occurrence: None)
  Receive Date: 20040825
  Receipt Date: 20040805
  Transmission Date: 20050211
  Serious: Yes (Hospitalization)
  Sender: FDA-Public Use
  Company Number: EWC040840185

PATIENT
  Age: 70 Year
  Sex: Male
  Weight: 67 kg

DRUGS (5)
  1. PEMETREXED [Suspect]
     Indication: MESOTHELIOMA
     Dosage: 900 MG DAY
     Dates: start: 20040714
  2. CARBOPLATIN [Suspect]
     Indication: MESOTHELIOMA
     Dosage: 450 MG
     Dates: start: 20040714
  3. VITAMIN B-12 [Concomitant]
  4. FOLIC ACID [Concomitant]
  5. MOTILIUM (DOMPERIDONE MALEATE) [Concomitant]

REACTIONS (8)
  - C-REACTIVE PROTEIN INCREASED [None]
  - EXTRAPYRAMIDAL DISORDER [None]
  - FATIGUE [None]
  - HAEMOGLOBIN DECREASED [None]
  - MUSCLE TIGHTNESS [None]
  - PLATELET COUNT INCREASED [None]
  - TACHYCARDIA [None]
  - TACHYPNOEA [None]
